FAERS Safety Report 12256794 (Version 1)
Quarter: 2016Q2

REPORT INFORMATION
  Report Type: Spontaneous
  Country: US (occurrence: US)
  Receive Date: 20160412
  Receipt Date: 20160412
  Transmission Date: 20160815
  Serious: No
  Sender: FDA-Public Use
  Company Number: US-GLAXOSMITHKLINE-US2016GSK048356

PATIENT
  Sex: Male

DRUGS (4)
  1. LAMICTAL [Suspect]
     Active Substance: LAMOTRIGINE
     Indication: PRODUCT USED FOR UNKNOWN INDICATION
     Dosage: 400 MG, QD
  2. ASA [Suspect]
     Active Substance: ASPIRIN
     Indication: PRODUCT USED FOR UNKNOWN INDICATION
  3. WELLBUTRIN XL [Suspect]
     Active Substance: BUPROPION HYDROCHLORIDE
     Indication: PRODUCT USED FOR UNKNOWN INDICATION
     Dosage: 150 MG, QD
  4. ZYPREXA [Suspect]
     Active Substance: OLANZAPINE
     Indication: PRODUCT USED FOR UNKNOWN INDICATION
     Dosage: 20 MG, QD

REACTIONS (20)
  - Logorrhoea [Unknown]
  - Paranoia [Unknown]
  - Unevaluable event [Unknown]
  - Gastrooesophageal reflux disease [Unknown]
  - Depressed mood [Unknown]
  - Dry mouth [Unknown]
  - Epigastric discomfort [Unknown]
  - Tachyphrenia [Unknown]
  - Feeling abnormal [Unknown]
  - Irritability [Unknown]
  - Decreased appetite [Unknown]
  - Chest pain [Unknown]
  - Sleep disorder [Unknown]
  - Sluggishness [Unknown]
  - Disturbance in attention [Unknown]
  - Weight increased [Unknown]
  - Mood altered [Unknown]
  - Anxiety [Unknown]
  - Panic reaction [Unknown]
  - Fatigue [Unknown]
